FAERS Safety Report 25829289 (Version 1)
Quarter: 2025Q3

REPORT INFORMATION
  Report Type: Spontaneous
  Country: US (occurrence: US)
  Receive Date: 20250922
  Receipt Date: 20250922
  Transmission Date: 20251021
  Serious: No
  Sender: ABBVIE
  Company Number: US-ABBVIE-6468728

PATIENT
  Age: 39 Year
  Sex: Female

DRUGS (2)
  1. LILETTA [Suspect]
     Active Substance: LEVONORGESTREL
     Indication: Product used for unknown indication
     Route: 015
     Dates: start: 20250916, end: 20250916
  2. LILETTA [Suspect]
     Active Substance: LEVONORGESTREL
     Route: 015

REACTIONS (2)
  - Procedural pain [Unknown]
  - Device breakage [Unknown]

NARRATIVE: CASE EVENT DATE: 20250901
